FAERS Safety Report 21072053 (Version 1)
Quarter: 2022Q3

REPORT INFORMATION
  Report Type: Spontaneous
  Country: US (occurrence: None)
  Receive Date: 20220712
  Receipt Date: 20220712
  Transmission Date: 20221027
  Serious: No
  Sender: FDA-Public Use
  Company Number: None

PATIENT
  Age: 55 Year
  Sex: Male
  Weight: 138.21 kg

DRUGS (32)
  1. CYCLOPHOSPHAMIDE [Suspect]
     Active Substance: CYCLOPHOSPHAMIDE
     Indication: Plasma cell myeloma
     Dosage: 750MG ONCE WEEK ORAL?
     Route: 048
     Dates: end: 20220712
  2. ACYCLOVIR [Concomitant]
     Active Substance: ACYCLOVIR
  3. AMITIZA [Concomitant]
     Active Substance: LUBIPROSTONE
  4. ATORVASTATIN [Concomitant]
     Active Substance: ATORVASTATIN
  5. BENADRYL [Concomitant]
     Active Substance: DIPHENHYDRAMINE HYDROCHLORIDE
  6. BUPROPION [Concomitant]
     Active Substance: BUPROPION
  7. CEFDINIR [Concomitant]
     Active Substance: CEFDINIR
  8. CETIRIZINE [Concomitant]
     Active Substance: CETIRIZINE HYDROCHLORIDE
  9. CLINDAMYCIN [Concomitant]
     Active Substance: CLINDAMYCIN
  10. CLOPIDOGREL [Concomitant]
     Active Substance: CLOPIDOGREL BISULFATE
  11. DEXAMETHASONE [Concomitant]
     Active Substance: DEXAMETHASONE
  12. DIZAEPAM [Concomitant]
  13. FENOFIBRATE [Concomitant]
     Active Substance: FENOFIBRATE
  14. FENTANYL [Concomitant]
     Active Substance: FENTANYL
  15. FLONASE [Concomitant]
     Active Substance: FLUTICASONE PROPIONATE
  16. FUROSEMIDE [Concomitant]
     Active Substance: FUROSEMIDE
  17. METFORMIN [Concomitant]
     Active Substance: METFORMIN HYDROCHLORIDE
  18. METOPROLOL [Concomitant]
     Active Substance: METOPROLOL
  19. VITAMINS [Concomitant]
     Active Substance: VITAMINS
  20. OFLOXACIN [Concomitant]
     Active Substance: OFLOXACIN
  21. OLOPATADINE [Concomitant]
     Active Substance: OLOPATADINE
  22. OMEPRAZOLE [Concomitant]
     Active Substance: OMEPRAZOLE
  23. ONDANSETRON [Concomitant]
     Active Substance: ONDANSETRON
  24. PERCOCET [Concomitant]
     Active Substance: ACETAMINOPHEN\OXYCODONE HYDROCHLORIDE
  25. PLAVIX [Concomitant]
     Active Substance: CLOPIDOGREL BISULFATE
  26. PREDNISOLONE [Concomitant]
     Active Substance: PREDNISOLONE
  27. PROLENSA [Concomitant]
     Active Substance: BROMFENAC SODIUM
  28. PROMETHAZINE [Concomitant]
     Active Substance: PROMETHAZINE HYDROCHLORIDE
  29. QUETIAPINE [Concomitant]
     Active Substance: QUETIAPINE
  30. TOBRADEX [Concomitant]
     Active Substance: DEXAMETHASONE\TOBRAMYCIN
  31. VENTOLIN [Concomitant]
     Active Substance: ALBUTEROL SULFATE
  32. WARFARN [Concomitant]

REACTIONS (1)
  - Laboratory test abnormal [None]
